FAERS Safety Report 14121578 (Version 1)
Quarter: 2017Q4

REPORT INFORMATION
  Report Type: Spontaneous
  Country: US (occurrence: US)
  Receive Date: 20171024
  Receipt Date: 20171024
  Transmission Date: 20180321
  Serious: No
  Sender: FDA-Public Use
  Company Number: US-MYLANLABS-2017M1062734

PATIENT
  Sex: Male
  Weight: 104 kg

DRUGS (4)
  1. SUTENT [Suspect]
     Active Substance: SUNITINIB MALATE
     Indication: ADRENAL MASS
  2. CYANOCOBALAMIN. [Suspect]
     Active Substance: CYANOCOBALAMIN
     Dosage: 1000 ?G, UNK
  3. SUTENT [Suspect]
     Active Substance: SUNITINIB MALATE
     Indication: PULMONARY MASS
     Dosage: 50 MG, QD (FOUR WEEKS ON, TWO WEEKS OF)
     Route: 048
     Dates: start: 201609
  4. CYANOCOBALAMIN. [Suspect]
     Active Substance: CYANOCOBALAMIN
     Indication: VITAMIN B12 DEFICIENCY
     Dosage: 250 ?G, QD
     Dates: start: 201704

REACTIONS (2)
  - Abdominal pain upper [Unknown]
  - Diarrhoea [Unknown]
